FAERS Safety Report 18845232 (Version 2)
Quarter: 2021Q1

REPORT INFORMATION
  Report Type: Spontaneous
  Country: US (occurrence: US)
  Receive Date: 20210204
  Receipt Date: 20210305
  Transmission Date: 20210419
  Serious: No
  Sender: FDA-Public Use
  Company Number: US-UNITED THERAPEUTICS-UNT-2021-001954

PATIENT
  Age: 75 Year
  Sex: Male
  Weight: 92.79 kg

DRUGS (3)
  1. REMODULIN [Suspect]
     Active Substance: TREPROSTINIL
     Indication: PULMONARY ARTERIAL HYPERTENSION
     Dosage: UNK, CONTINUING
     Route: 041
     Dates: start: 20210112
  2. REMODULIN [Suspect]
     Active Substance: TREPROSTINIL
     Dosage: 0.013 ?G/KG, CONTINUING
     Route: 041
     Dates: start: 202101
  3. REMODULIN [Suspect]
     Active Substance: TREPROSTINIL
     Dosage: 0.025 ?G/KG, CONTINUING
     Route: 041

REACTIONS (5)
  - Catheter site rash [Unknown]
  - Catheter site haemorrhage [Unknown]
  - Device dislocation [Unknown]
  - Device alarm issue [Unknown]
  - Catheter site erythema [Unknown]

NARRATIVE: CASE EVENT DATE: 202101
